FAERS Safety Report 24910693 (Version 2)
Quarter: 2025Q2

REPORT INFORMATION
  Report Type: Spontaneous
  Country: JP (occurrence: JP)
  Receive Date: 20250131
  Receipt Date: 20250422
  Transmission Date: 20250717
  Serious: Yes (Hospitalization, Other)
  Sender: PFIZER
  Company Number: JP-PFIZER INC-PV202500011843

PATIENT
  Age: 81 Year
  Sex: Female
  Weight: 46.5 kg

DRUGS (6)
  1. XELJANZ [Suspect]
     Active Substance: TOFACITINIB CITRATE
     Indication: Rheumatoid arthritis
     Dosage: 10 MG, 2X/DAY (AFTER BREAKFAST AND DINNER)
     Route: 048
     Dates: start: 20230525, end: 20250123
  2. ATOVAQUONE [Concomitant]
     Active Substance: ATOVAQUONE
     Dosage: 150MG/ML (5ML/P), 2 PACKETS, 1X/DAY (AFTER BREAKFAST)
     Route: 048
     Dates: end: 20250123
  3. LAFUTIDINE [Concomitant]
     Active Substance: LAFUTIDINE
     Dosage: 10 MG, 1X/DAY (AFTER DINNER)
     Route: 048
     Dates: end: 20250123
  4. MINODRONIC ACID [Concomitant]
     Active Substance: MINODRONIC ACID
     Dosage: 50 MG, 1X/DAY (AFTER WAKING UP)
     Route: 048
     Dates: end: 20250123
  5. PREDNISOLONE [Concomitant]
     Active Substance: PREDNISOLONE
     Dosage: 4 MG, 1X/DAY (AFTER BREAKFAST)
     Route: 048
     Dates: end: 20250123
  6. CALONAL [Concomitant]
     Active Substance: ACETAMINOPHEN
     Dosage: 1000 MG, 2X/DAY (AFTER BREAKFAST AND DINNER)
     Route: 048
     Dates: end: 20250123

REACTIONS (3)
  - Influenza [Recovered/Resolved]
  - Hypoxia [Recovered/Resolved]
  - Interstitial lung disease [Recovering/Resolving]

NARRATIVE: CASE EVENT DATE: 20250118
